FAERS Safety Report 7137427-3 (Version None)
Quarter: 2010Q4

REPORT INFORMATION
  Report Type: 
  Country: None (occurrence: None)
  Receive Date: 20101206
  Receipt Date: 20101126
  Transmission Date: 20110411
  Serious: No
  Sender: FDA-Public Use
  Company Number: JP-JNJFOC-20101108761

PATIENT

DRUGS (3)
  1. DUROTEP MT [Suspect]
     Indication: CANCER PAIN
     Route: 062
  2. DUROTEP MT [Suspect]
     Dosage: HALF OF FENTANYL MATRIX PATCH
     Route: 062
  3. DUROTEP MT [Suspect]
     Route: 062

REACTIONS (3)
  - SOMNOLENCE [None]
  - UNDERDOSE [None]
  - WRONG TECHNIQUE IN DRUG USAGE PROCESS [None]
